FAERS Safety Report 23255654 (Version 1)
Quarter: 2023Q4

REPORT INFORMATION
  Report Type: Spontaneous
  Country: US (occurrence: US)
  Receive Date: 20231203
  Receipt Date: 20231203
  Transmission Date: 20240110
  Serious: Yes (Hospitalization)
  Sender: FDA-Public Use
  Company Number: US-IHL-000410

PATIENT
  Sex: Female
  Weight: 48 kg

DRUGS (1)
  1. NITROFURANTOIN [Suspect]
     Active Substance: NITROFURANTOIN
     Indication: Product used for unknown indication
     Route: 065

REACTIONS (4)
  - Muscle fatigue [Unknown]
  - General symptom [Unknown]
  - Influenza like illness [Unknown]
  - Nausea [Unknown]
